FAERS Safety Report 6764008-3 (Version None)
Quarter: 2010Q2

REPORT INFORMATION
  Report Type: 
  Country: None (occurrence: None)
  Receive Date: 20100610
  Receipt Date: 20100607
  Transmission Date: 20101027
  Serious: Yes (Death)
  Sender: FDA-Public Use
  Company Number: KR-ASTRAZENECA-2010SE26059

PATIENT
  Age: 21182 Day
  Sex: Male
  Weight: 68 kg

DRUGS (6)
  1. IRESSA [Suspect]
     Indication: NON-SMALL CELL LUNG CANCER
     Route: 048
     Dates: start: 20051027, end: 20051105
  2. MEROPEN [Concomitant]
     Indication: ANTIBIOTIC THERAPY
     Dates: start: 20051027, end: 20051105
  3. VANCOMYCIN [Concomitant]
     Indication: ANTIBIOTIC THERAPY
     Dates: start: 20051027, end: 20051105
  4. SOLU-M [Concomitant]
     Indication: DYSPNOEA
     Dates: start: 20051027, end: 20051105
  5. MORPHINE [Concomitant]
     Indication: PAIN
     Dates: start: 20051027, end: 20051105
  6. BSV [Concomitant]
     Indication: PRODUCTIVE COUGH
     Dates: start: 20051027, end: 20051105

REACTIONS (1)
  - DISEASE PROGRESSION [None]
